FAERS Safety Report 26212432 (Version 1)
Quarter: 2025Q4

REPORT INFORMATION
  Report Type: Spontaneous
  Country: JP (occurrence: JP)
  Receive Date: 20251230
  Receipt Date: 20251230
  Transmission Date: 20260117
  Serious: Yes (Other)
  Sender: BRISTOL-MYERS SQUIBB COMPANY
  Company Number: JP-BRISTOL-MYERS SQUIBB COMPANY-2025-173431

PATIENT
  Age: 3 Year
  Sex: Female

DRUGS (7)
  1. VIDAZA [Suspect]
     Active Substance: AZACITIDINE
     Indication: Juvenile chronic myelomonocytic leukaemia
     Dosage: FOUR CYCLES
     Route: 042
  2. VIDAZA [Suspect]
     Active Substance: AZACITIDINE
     Dosage: FOUR CYCLES OF 75 MG/M^2 X 5 DAYS
     Route: 042
  3. VIDAZA [Suspect]
     Active Substance: AZACITIDINE
     Dosage: FOUR CYCLES OF 75 MG/M^2/DAY
     Route: 042
  4. LYMPHOCYTES [Suspect]
     Active Substance: LYMPHOCYTES
     Indication: Juvenile chronic myelomonocytic leukaemia
     Route: 042
  5. FLUDARABINE [Concomitant]
     Active Substance: FLUDARABINE PHOSPHATE
     Indication: Product used for unknown indication
  6. MELPHALAN [Concomitant]
     Active Substance: MELPHALAN
     Indication: Product used for unknown indication
  7. THIOTEPA [Concomitant]
     Active Substance: THIOTEPA
     Indication: Product used for unknown indication

REACTIONS (1)
  - Organising pneumonia [Unknown]
